FAERS Safety Report 14142454 (Version 1)
Quarter: 2017Q4

REPORT INFORMATION
  Report Type: Other
  Country: IN (occurrence: IN)
  Receive Date: 20171030
  Receipt Date: 20171030
  Transmission Date: 20180321
  Serious: Yes (Other)
  Sender: FDA-Public Use
  Company Number: IN-EMD SERONO-8198670

PATIENT
  Sex: Female

DRUGS (2)
  1. HMG                                /06269501/ [Suspect]
     Active Substance: GONADOTROPHIN, CHORIONIC
     Indication: OVULATION INDUCTION
     Dosage: FROM 2ND DAY OF MENSTRUAL CYCLE INJECTION HMG (HUMAN MENOPAUSAL GONADOTROPINS) (150 IU INTRAMUSCULAR
     Route: 030
  2. CETRORELIX [Suspect]
     Active Substance: CETRORELIX
     Indication: OVULATION INDUCTION
     Dosage: FROM 7TH TO 10TH DAY OF MC (MENSTRUAL CYCLE)
     Route: 058

REACTIONS (1)
  - Abortion [Recovered/Resolved]
